FAERS Safety Report 14284367 (Version 5)
Quarter: 2018Q2

REPORT INFORMATION
  Report Type: Spontaneous
  Country: US (occurrence: US)
  Receive Date: 20171214
  Receipt Date: 20180416
  Transmission Date: 20180711
  Serious: Yes (Congenital Anomaly, Other)
  Sender: FDA-Public Use
  Company Number: PHEH2017US039381

PATIENT
  Sex: Male

DRUGS (1)
  1. ZOFRAN ODT [Suspect]
     Active Substance: ONDANSETRON HYDROCHLORIDE
     Indication: FOETAL EXPOSURE DURING PREGNANCY
     Dosage: MOTHER^S DOSE: 8 MG, PRN
     Route: 064

REACTIONS (42)
  - Ventricular septal defect [Unknown]
  - Right ventricular hypertrophy [Unknown]
  - Pulmonary valve stenosis congenital [Unknown]
  - Diarrhoea [Unknown]
  - Skin papilloma [Unknown]
  - Anomalous pulmonary venous connection [Recovered/Resolved]
  - Candida infection [Unknown]
  - Constipation [Unknown]
  - Pyrexia [Unknown]
  - Gastroenteritis [Unknown]
  - Pharyngitis [Unknown]
  - Dental caries [Unknown]
  - Patent ductus arteriosus [Unknown]
  - Double outlet right ventricle [Recovered/Resolved]
  - Jaundice neonatal [Unknown]
  - Rash [Unknown]
  - Conjunctivitis [Unknown]
  - Road traffic accident [Unknown]
  - Dehydration [Unknown]
  - Heterotaxia [Unknown]
  - Upper respiratory tract infection [Unknown]
  - Viral infection [Unknown]
  - Acarodermatitis [Unknown]
  - Dermatitis [Unknown]
  - Cough [Unknown]
  - Right ventricular enlargement [Unknown]
  - Aortic valve incompetence [Unknown]
  - Cardiac murmur [Unknown]
  - Otitis media [Unknown]
  - Ear pain [Unknown]
  - Atrial septal defect [Recovered/Resolved]
  - Fallot^s tetralogy [Unknown]
  - Bronchitis [Unknown]
  - Rhinitis allergic [Unknown]
  - Bronchospasm [Unknown]
  - Pulmonary valve incompetence [Unknown]
  - Tricuspid valve incompetence [Unknown]
  - Heart disease congenital [Unknown]
  - Foetal exposure during pregnancy [Unknown]
  - Injury [Unknown]
  - Cerumen impaction [Unknown]
  - Chest pain [Unknown]
